FAERS Safety Report 18574563 (Version 1)
Quarter: 2020Q4

REPORT INFORMATION
  Report Type: Other
  Country: IT (occurrence: IT)
  Receive Date: 20201203
  Receipt Date: 20201203
  Transmission Date: 20210114
  Serious: Yes (Other)
  Sender: FDA-Public Use
  Company Number: IT-COVIS PHARMA B.V.-2020COV00565

PATIENT
  Age: 6 Year
  Sex: Female
  Weight: 17 kg

DRUGS (7)
  1. CEFTRIAXONE. [Suspect]
     Active Substance: CEFTRIAXONE
     Indication: INFECTION
     Dosage: 1.5 G, 1X/DAY
  2. FRISIUM [Concomitant]
     Active Substance: CLOBAZAM
     Dosage: 10 MG, 1X/DAY
  3. DEXAMETHASONE. [Suspect]
     Active Substance: DEXAMETHASONE
     Dosage: 12 MG, 1X/DAY
  4. ETHOSUXIMIDE. [Concomitant]
     Active Substance: ETHOSUXIMIDE
     Dosage: 11 ML, 1X/DAY
  5. OMEPRAZOLE MAGNESIUM. [Suspect]
     Active Substance: OMEPRAZOLE MAGNESIUM
     Dosage: 20 MG, 1X/DAY
  6. VANCOMYCIN [Suspect]
     Active Substance: VANCOMYCIN
     Dosage: 1 G, 1X/DAY
  7. SULTIAME [Concomitant]
     Active Substance: SULTHIAME
     Dosage: 160 MG, 1X/DAY

REACTIONS (4)
  - Electrocardiogram QT prolonged [Unknown]
  - Hypokalaemia [Unknown]
  - Drug interaction [Unknown]
  - Hyponatraemia [Unknown]

NARRATIVE: CASE EVENT DATE: 20201111
